FAERS Safety Report 5338193-4 (Version None)
Quarter: 2007Q2

REPORT INFORMATION
  Report Type: 
  Country: None (occurrence: None)
  Receive Date: 20070329
  Receipt Date: 20070301
  Transmission Date: 20071010
  Serious: Yes (Other)
  Sender: FDA-Public Use
  Company Number: US-JNJFOC-20070300854

PATIENT
  Age: 36 Year
  Sex: Male

DRUGS (3)
  1. ULTRAM ER [Suspect]
     Indication: BACK PAIN
     Dosage: 300 MG, 1 IN 12 HOUR, ORAL
     Route: 048
     Dates: start: 20070201, end: 20070211
  2. DIET MEDICATION (DIET FORMULATIONS FOR TREATMENT OF OBESITY) UNSPECIFI [Concomitant]
  3. ULTRAM [Concomitant]

REACTIONS (1)
  - CONVULSION [None]
